FAERS Safety Report 5303674-6 (Version None)
Quarter: 2007Q2

REPORT INFORMATION
  Report Type: 
  Country: None (occurrence: None)
  Receive Date: 20070420
  Receipt Date: 20070323
  Transmission Date: 20071010
  Serious: Yes (Congenital Anomaly, Other)
  Sender: FDA-Public Use
  Company Number: GB-ABBOTT-06P-167-0348721-00

PATIENT

DRUGS (2)
  1. HUMIRA [Suspect]
     Indication: TRANSMISSION OF DRUG VIA SEMEN
     Dates: start: 20040101
  2. HUMIRA [Suspect]
     Indication: ARTHRITIS REACTIVE

REACTIONS (2)
  - ABORTION SPONTANEOUS [None]
  - FOETAL GROWTH RETARDATION [None]
